FAERS Safety Report 5202610-0 (Version None)
Quarter: 2007Q1

REPORT INFORMATION
  Report Type: 
  Country: None (occurrence: None)
  Receive Date: 20070109
  Receipt Date: 20070102
  Transmission Date: 20070707
  Serious: Yes (Death, Life-Threatening, Hospitalization)
  Sender: FDA-Public Use
  Company Number: US-PFIZER INC-2006140080

PATIENT
  Sex: Male
  Weight: 136.1 kg

DRUGS (11)
  1. NORVASC [Interacting]
     Indication: HYPERTENSION
     Dosage: DAILY DOSE:5MG-FREQ:DAILY
  2. DANTROLENE SODIUM [Interacting]
     Indication: NEUROLEPTIC MALIGNANT SYNDROME
     Route: 042
     Dates: start: 20060714
  3. CLOZAPINE [Suspect]
     Indication: SCHIZOAFFECTIVE DISORDER
  4. CLOZAPINE [Suspect]
  5. GLUCOPHAGE [Concomitant]
  6. ATENOLOL [Concomitant]
  7. CLONAZEPAM [Concomitant]
     Dosage: DAILY DOSE:3MG-FREQ:DAILY
  8. GLIPIZIDE [Concomitant]
  9. BROMOCRIPTINE MESYLATE [Concomitant]
     Route: 048
  10. BROMOCRIPTINE MESYLATE [Concomitant]
  11. INSULIN [Concomitant]

REACTIONS (10)
  - AGITATION [None]
  - CARDIO-RESPIRATORY ARREST [None]
  - CONFUSIONAL STATE [None]
  - DRUG INTERACTION [None]
  - LETHARGY [None]
  - PARALYSIS [None]
  - RESPIRATORY DEPRESSION [None]
  - TACHYCARDIA [None]
  - TREMOR [None]
  - VENTRICULAR FIBRILLATION [None]
